FAERS Safety Report 8124640-1 (Version None)
Quarter: 2012Q1

REPORT INFORMATION
  Report Type: 
  Country: None (occurrence: None)
  Receive Date: 20120209
  Receipt Date: 20120209
  Transmission Date: 20120608
  Serious: Yes (Life-Threatening)
  Sender: FDA-Public Use
  Company Number: None

PATIENT
  Age: 40 Year
  Sex: Female
  Weight: 68.038 kg

DRUGS (1)
  1. MIDRIN [Suspect]
     Indication: MIGRAINE
     Dates: start: 19930101, end: 19950901

REACTIONS (7)
  - PALPITATIONS [None]
  - VIITH NERVE PARALYSIS [None]
  - SLOW SPEECH [None]
  - DYSGRAPHIA [None]
  - BLOOD GLUCOSE DECREASED [None]
  - FATIGUE [None]
  - DYSARTHRIA [None]
